FAERS Safety Report 14248743 (Version 2)
Quarter: 2017Q4

REPORT INFORMATION
  Report Type: Report from Study
  Country: DE (occurrence: DE)
  Receive Date: 20171204
  Receipt Date: 20171222
  Transmission Date: 20180321
  Serious: Yes (Hospitalization)
  Sender: FDA-Public Use
  Company Number: DE-PFIZER INC-2017462398

PATIENT
  Age: 71 Year
  Sex: Female
  Weight: 73 kg

DRUGS (16)
  1. MARCUMAR [Concomitant]
     Active Substance: PHENPROCOUMON
     Indication: THROMBOSIS PROPHYLAXIS
     Dosage: 1X/DAY (1-0-0) DEPENDING ON INR
     Route: 048
  2. MAGNESIUM [Concomitant]
     Active Substance: MAGNESIUM
     Indication: MAGNESIUM DEFICIENCY
     Dosage: 250 MG, 1X/DAY
     Route: 048
     Dates: start: 20150317
  3. BOSULIF [Suspect]
     Active Substance: BOSUTINIB MONOHYDRATE
     Indication: CHRONIC MYELOID LEUKAEMIA
     Dosage: 500 MG, 1X/DAY (1-0-0)
     Route: 048
     Dates: start: 20140416, end: 20171024
  4. BISOPROLOL [Concomitant]
     Active Substance: BISOPROLOL
     Indication: CARDIOVERSION
     Dosage: 5 MG, UNK
     Route: 048
  5. LISINOPRIL. [Concomitant]
     Active Substance: LISINOPRIL
     Indication: HYPERTENSION
     Dosage: 20 MG, 1X/DAY (1-0-0)
     Route: 048
  6. PRAVASTATIN. [Concomitant]
     Active Substance: PRAVASTATIN
     Indication: METABOLIC SYNDROME
  7. ALLOPURINE [Concomitant]
     Indication: HYPERURICAEMIA
     Dosage: 100 MG, 2X/DAY (1-0-1)
     Route: 048
  8. BERLINSULIN H [Concomitant]
     Indication: TYPE 2 DIABETES MELLITUS
     Dosage: 21 IU, 2X/DAY (21 IU - 0 - 21 IU)
     Route: 058
  9. BISOPROLOL [Concomitant]
     Active Substance: BISOPROLOL
     Indication: HYPERTENSION
     Dosage: 10 MG, 1X/DAY
     Route: 048
  10. HCT [Concomitant]
     Active Substance: HYDROCHLOROTHIAZIDE
     Indication: HYPERTENSION
     Dosage: 25 MG, 1X/DAY
     Route: 048
  11. MARCUMAR [Concomitant]
     Active Substance: PHENPROCOUMON
     Indication: CARDIOVERSION
  12. SPIRONOLACTONE. [Concomitant]
     Active Substance: SPIRONOLACTONE
     Indication: HYPERTENSION
     Dosage: 25 MG, 1X/DAY (1-0-0)
     Dates: start: 20171015
  13. TOREM [Suspect]
     Active Substance: TORSEMIDE
     Indication: HYPERTENSION
     Dosage: 60 MG, 1X/DAY
     Route: 048
  14. TOREM [Suspect]
     Active Substance: TORSEMIDE
     Indication: DIURETIC THERAPY
     Dosage: 40 MG, 1X/DAY (1-0-0)
     Route: 048
     Dates: start: 20170927, end: 20171024
  15. PRAVASTATIN. [Concomitant]
     Active Substance: PRAVASTATIN
     Indication: BLOOD CHOLESTEROL INCREASED
     Dosage: 10 MG, 1X/DAY (1-0-0)
     Route: 048
     Dates: start: 20150410
  16. BECLOMETASON [Concomitant]
     Active Substance: BECLOMETHASONE DIPROPIONATE
     Indication: LUNG DISORDER
     Dosage: UNK
     Route: 055
     Dates: start: 20160712

REACTIONS (1)
  - Metabolic disorder [Recovered/Resolved]

NARRATIVE: CASE EVENT DATE: 20171024
